FAERS Safety Report 15484796 (Version 1)
Quarter: 2018Q4

REPORT INFORMATION
  Report Type: Spontaneous
  Country: IT (occurrence: IT)
  Receive Date: 20181010
  Receipt Date: 20181010
  Transmission Date: 20190205
  Serious: Yes (Hospitalization, Other)
  Sender: FDA-Public Use
  Company Number: IT-ALLERGAN-CIP09002855

PATIENT
  Age: 32 Year
  Sex: Female

DRUGS (1)
  1. MESALAZINE UNK [Suspect]
     Active Substance: MESALAMINE
     Indication: COLITIS ULCERATIVE
     Dosage: UNK, UNKNOWN
     Route: 048

REACTIONS (4)
  - Pneumonia [Unknown]
  - Interstitial lung disease [Recovered/Resolved]
  - Blood test abnormal [Recovered/Resolved]
  - Carbon monoxide diffusing capacity decreased [Recovered/Resolved]
